FAERS Safety Report 23403551 (Version 1)
Quarter: 2024Q1

REPORT INFORMATION
  Report Type: Spontaneous
  Country: CN (occurrence: CN)
  Receive Date: 20240116
  Receipt Date: 20240116
  Transmission Date: 20240410
  Serious: Yes (Hospitalization)
  Sender: FDA-Public Use
  Company Number: None

PATIENT
  Age: 79 Year
  Sex: Female
  Weight: 45 kg

DRUGS (4)
  1. NOVOLIN R [Suspect]
     Active Substance: INSULIN HUMAN
     Indication: Type 2 diabetes mellitus
     Dosage: 14 IU, BID (14U IN THE MORNING AND 14U IN THE EVENING)
     Route: 058
     Dates: start: 20121201
  2. NOVOLIN R [Suspect]
     Active Substance: INSULIN HUMAN
     Dosage: 10 IU, BID(10U 30 MINUTES BEFORE BREAKFAST AND 10U 30 MINUTES BEFORE DINNER)
     Route: 058
     Dates: start: 20231228
  3. METFORMIN [Suspect]
     Active Substance: METFORMIN HYDROCHLORIDE
     Indication: Type 2 diabetes mellitus
     Dosage: 0.5G,BID
     Route: 048
     Dates: start: 20221201, end: 20231227
  4. GLIMEPIRIDE [Suspect]
     Active Substance: GLIMEPIRIDE
     Indication: Type 2 diabetes mellitus
     Dosage: 2MG,QD
     Route: 048
     Dates: start: 20221201, end: 20231227

REACTIONS (1)
  - Coma [Recovering/Resolving]

NARRATIVE: CASE EVENT DATE: 20231227
